FAERS Safety Report 9909162 (Version 3)
Quarter: 2014Q2

REPORT INFORMATION
  Report Type: Spontaneous
  Country: JP (occurrence: JP)
  Receive Date: 20140219
  Receipt Date: 20140618
  Transmission Date: 20141212
  Serious: Yes (Death, Hospitalization)
  Sender: FDA-Public Use
  Company Number: JP-EISAI INC-E7389-04679-SPO-JP

PATIENT
  Age: 68 Year
  Sex: Female
  Weight: 47 kg

DRUGS (4)
  1. HALAVEN [Suspect]
     Indication: BREAST CANCER RECURRENT
     Dosage: 1.1 MG/M2
     Route: 041
     Dates: start: 20130802, end: 20140117
  2. PROTECADIN [Concomitant]
     Indication: PRODUCT USED FOR UNKNOWN INDICATION
     Route: 048
  3. VOLTAREN [Concomitant]
     Indication: CANCER PAIN
     Route: 048
  4. ZOMETA [Concomitant]
     Indication: METASTASES TO BONE
     Dosage: 4 MG/DAY
     Route: 041
     Dates: start: 20110422, end: 20140117

REACTIONS (1)
  - Interstitial lung disease [Fatal]
